FAERS Safety Report 9968401 (Version 1)
Quarter: 2014Q1

REPORT INFORMATION
  Report Type: Report from Study
  Country: US (occurrence: US)
  Receive Date: 20140306
  Receipt Date: 20140306
  Transmission Date: 20141002
  Serious: No
  Sender: FDA-Public Use
  Company Number: US-ABBVIE-13P-163-1145570-00

PATIENT
  Age: 42 Year
  Sex: Female
  Weight: 74.91 kg

DRUGS (4)
  1. HUMIRA [Suspect]
     Indication: PSORIATIC ARTHROPATHY
     Dates: start: 2011, end: 201307
  2. HUMIRA [Suspect]
     Dates: start: 201308
  3. ZOLOFT [Concomitant]
     Indication: DEPRESSION
  4. COREG [Concomitant]
     Indication: HYPERTENSION

REACTIONS (2)
  - Gastroenteritis viral [Recovered/Resolved]
  - Nasopharyngitis [Recovered/Resolved]
